FAERS Safety Report 18762251 (Version 1)
Quarter: 2021Q1

REPORT INFORMATION
  Report Type: Spontaneous
  Country: US (occurrence: US)
  Receive Date: 20210120
  Receipt Date: 20210120
  Transmission Date: 20210419
  Serious: Yes (Other)
  Sender: FDA-Public Use
  Company Number: US-PFIZER INC-2021012339

PATIENT
  Age: 30 Month
  Sex: Female

DRUGS (6)
  1. FENTANYL CITRATE. [Suspect]
     Active Substance: FENTANYL CITRATE
     Indication: ANAESTHESIA
     Dosage: UNK
  2. METHOHEXITAL [Concomitant]
     Active Substance: METHOHEXITAL
     Dosage: 30 MG/KG
     Route: 054
  3. OXYGEN. [Concomitant]
     Active Substance: OXYGEN
  4. HALOTHANE. [Concomitant]
     Active Substance: HALOTHANE
  5. PANCURONIUM [Concomitant]
     Active Substance: PANCURONIUM
  6. NITROUS OXIDE. [Concomitant]
     Active Substance: NITROUS OXIDE

REACTIONS (4)
  - Urticaria [Recovered/Resolved]
  - Hypersensitivity [Recovered/Resolved]
  - Blood pressure systolic decreased [Recovered/Resolved]
  - Hypoventilation [Recovered/Resolved]
